FAERS Safety Report 4614061-8 (Version None)
Quarter: 2005Q1

REPORT INFORMATION
  Report Type: 
  Country: None (occurrence: None)
  Receive Date: 20050316
  Receipt Date: 20050301
  Transmission Date: 20050727
  Serious: Yes (Life-Threatening, Other)
  Sender: FDA-Public Use
  Company Number: MAG-2005-0000344

PATIENT
  Age: 54 Year
  Sex: Male

DRUGS (3)
  1. MORPHINE SULFATE [Suspect]
     Indication: CANCER PAIN
     Dosage: SEE IMAGE
     Route: 048
     Dates: end: 20050228
  2. MORPHINE SULFATE [Suspect]
     Indication: CANCER PAIN
     Dosage: SEE IMAGE
     Route: 048
     Dates: start: 20041101
  3. CATECHOLAMINE [Concomitant]

REACTIONS (4)
  - DELIRIUM [None]
  - SELF MUTILATION [None]
  - SKIN LACERATION [None]
  - WOUND EVISCERATION [None]
